FAERS Safety Report 21509574 (Version 2)
Quarter: 2022Q4

REPORT INFORMATION
  Report Type: Spontaneous
  Country: CA (occurrence: CA)
  Receive Date: 20221026
  Receipt Date: 20221114
  Transmission Date: 20230112
  Serious: Yes (Death)
  Sender: FDA-Public Use
  Company Number: CA-BAYER-2022P019296

PATIENT
  Age: 30 Year

DRUGS (1)
  1. STIVARGA [Suspect]
     Active Substance: REGORAFENIB
     Indication: Osteosarcoma
     Dosage: UNK
     Dates: start: 202205, end: 202208

REACTIONS (2)
  - Osteosarcoma metastatic [Fatal]
  - Off label use [None]

NARRATIVE: CASE EVENT DATE: 20221018
